FAERS Safety Report 11194957 (Version 1)
Quarter: 2015Q2

REPORT INFORMATION
  Report Type: Spontaneous
  Country: BR (occurrence: BR)
  Receive Date: 20150617
  Receipt Date: 20150617
  Transmission Date: 20150821
  Serious: Yes (Death, Hospitalization, Other)
  Sender: FDA-Public Use
  Company Number: BR-PFIZER INC-2014355962

PATIENT
  Age: 70 Year
  Sex: Female
  Weight: 45 kg

DRUGS (1)
  1. SUTENT [Suspect]
     Active Substance: SUNITINIB MALATE
     Indication: RENAL CELL CARCINOMA
     Dosage: 50 MG, CYCLIC
     Route: 048
     Dates: start: 201407, end: 20141215

REACTIONS (9)
  - Oral disorder [Unknown]
  - Dysgeusia [Unknown]
  - Lip dry [Unknown]
  - Lung disorder [Unknown]
  - Vomiting [Unknown]
  - Disease progression [Unknown]
  - Renal cell carcinoma [Unknown]
  - Asthenia [Unknown]
  - Death [Fatal]

NARRATIVE: CASE EVENT DATE: 2014
